FAERS Safety Report 7493287-2 (Version None)
Quarter: 2011Q2

REPORT INFORMATION
  Report Type: 
  Country: None (occurrence: None)
  Receive Date: 20110520
  Receipt Date: 20110425
  Transmission Date: 20111010
  Serious: Yes (Other)
  Sender: FDA-Public Use
  Company Number: US-BAYER-201012553NA

PATIENT
  Age: 41 Year
  Sex: Female
  Weight: 110 kg

DRUGS (3)
  1. NORVASC [Concomitant]
     Indication: HYPERTENSION
     Dosage: UNK
     Dates: start: 20020223
  2. YAZ [Suspect]
     Indication: PRODUCT USED FOR UNKNOWN INDICATION
     Dosage: 1 DF (DAILY DOSE), , ORAL
     Route: 048
     Dates: start: 19990101, end: 20090101
  3. YASMIN [Suspect]
     Indication: PRODUCT USED FOR UNKNOWN INDICATION
     Dosage: 1 DF (DAILY DOSE), , ORAL
     Route: 048
     Dates: start: 19990101, end: 20090101

REACTIONS (3)
  - GALLBLADDER DISORDER [None]
  - CHOLELITHIASIS [None]
  - PORCELAIN GALLBLADDER [None]
